FAERS Safety Report 6615680-X (Version None)
Quarter: 2010Q1

REPORT INFORMATION
  Report Type: 
  Country: None (occurrence: None)
  Receive Date: 20100305
  Receipt Date: 20100225
  Transmission Date: 20100710
  Serious: Yes (Other)
  Sender: FDA-Public Use
  Company Number: CA-ROCHE-687889

PATIENT
  Sex: Male
  Weight: 132.2 kg

DRUGS (8)
  1. TOCILIZUMAB [Suspect]
     Indication: RHEUMATOID ARTHRITIS
     Dosage: STUDY WA18696
     Route: 042
     Dates: end: 20100204
  2. TOCILIZUMAB [Suspect]
     Dosage: PREVIOUS CORE STUDY WA18063
     Route: 042
     Dates: start: 20060306
  3. IBUPROFEN [Concomitant]
     Dates: start: 20050715
  4. FOLIC ACID [Concomitant]
     Dates: start: 20030709
  5. METHOTREXATE [Concomitant]
     Dates: start: 20060724
  6. CRESTOR [Concomitant]
     Dates: start: 20090523
  7. ALTACE [Concomitant]
     Dates: start: 20090511
  8. ACETAMINOPHEN [Concomitant]
     Dates: start: 20050715

REACTIONS (1)
  - MALIGNANT MUSCLE NEOPLASM [None]
